FAERS Safety Report 17815371 (Version 4)
Quarter: 2020Q2

REPORT INFORMATION
  Report Type: Spontaneous
  Country: IE (occurrence: IE)
  Receive Date: 20200522
  Receipt Date: 20200624
  Transmission Date: 20200714
  Serious: Yes (Hospitalization)
  Sender: FDA-Public Use
  Company Number: IE-ELI_LILLY_AND_COMPANY-IE201912007715

PATIENT
  Age: 72 Year
  Sex: Female

DRUGS (16)
  1. DUODOPA INTESTINAL GEL [Suspect]
     Active Substance: CARBIDOPA\LEVODOPA
     Dosage: 1.7 ML, EVERY HOUR
     Route: 050
     Dates: start: 20200117, end: 20200131
  2. CALCICHEW D3 FORTE [Concomitant]
     Active Substance: CALCIUM\CHOLECALCIFEROL
     Indication: PRODUCT USED FOR UNKNOWN INDICATION
     Dosage: 2 TABLETS, DAILY, 500MG
     Route: 065
  3. FLUDROCORTISONE [Concomitant]
     Active Substance: FLUDROCORTISONE
     Indication: PRODUCT USED FOR UNKNOWN INDICATION
     Dosage: 0.1 MG, DAILY
     Route: 048
  4. BETMIGA [Concomitant]
     Active Substance: MIRABEGRON
     Indication: PRODUCT USED FOR UNKNOWN INDICATION
     Dosage: 50 MG, OTHER (NIGHT)
     Route: 048
  5. FYBOGEL [Concomitant]
     Active Substance: PLANTAGO OVATA SEED
     Indication: PRODUCT USED FOR UNKNOWN INDICATION
     Dosage: 1 MG, PRN (SACHET)
     Route: 065
  6. LACTULOSE. [Concomitant]
     Active Substance: LACTULOSE
     Indication: PRODUCT USED FOR UNKNOWN INDICATION
     Dosage: 10 ML, PRN
     Route: 065
  7. FORSTEO 250UG/ML [Suspect]
     Active Substance: TERIPARATIDE
     Indication: PRODUCT USED FOR UNKNOWN INDICATION
     Dosage: 20 UG, DAILY
     Route: 058
     Dates: start: 20180314
  8. DUODOPA INTESTINAL GEL [Suspect]
     Active Substance: CARBIDOPA\LEVODOPA
     Dosage: 1.5 ML, EVERY HOUR VIA PEG J
     Route: 050
     Dates: start: 20200214
  9. MOTILIUM [Concomitant]
     Active Substance: DOMPERIDONE
     Indication: PRODUCT USED FOR UNKNOWN INDICATION
     Dosage: 10 MG, TID
  10. DUODOPA INTESTINAL GEL [Suspect]
     Active Substance: CARBIDOPA\LEVODOPA
     Dosage: 1.9 ML, EVERY HOUR
     Route: 050
     Dates: start: 20200115
  11. DUODOPA INTESTINAL GEL [Suspect]
     Active Substance: CARBIDOPA\LEVODOPA
     Indication: PARKINSON^S DISEASE
     Dosage: 1.8 ML, EVERY HOUR
     Route: 050
     Dates: start: 20170515
  12. DUODOPA INTESTINAL GEL [Suspect]
     Active Substance: CARBIDOPA\LEVODOPA
     Dosage: 2 ML, EVERY HOUR
     Route: 050
  13. LUSTRAL [Concomitant]
     Active Substance: SERTRALINE HYDROCHLORIDE
     Indication: PRODUCT USED FOR UNKNOWN INDICATION
     Dosage: UNK, OTHER (NIGHT)
     Route: 048
  14. DUODOPA INTESTINAL GEL [Suspect]
     Active Substance: CARBIDOPA\LEVODOPA
     Dosage: 1.7 ML TO 1.6 ML, EVERY HOUR
     Route: 050
  15. AZILECT [Concomitant]
     Active Substance: RASAGILINE MESYLATE
     Indication: PRODUCT USED FOR UNKNOWN INDICATION
     Dosage: 1 DOSAGE FORM, DAILY(1MG)
     Route: 065
  16. MIDON [Concomitant]
     Active Substance: MIDODRINE
     Indication: PRODUCT USED FOR UNKNOWN INDICATION
     Dosage: 5 MG, DAILY
     Route: 065

REACTIONS (6)
  - Stoma site infection [Recovered/Resolved]
  - Dyskinesia [Not Recovered/Not Resolved]
  - Nervousness [Not Recovered/Not Resolved]
  - On and off phenomenon [Not Recovered/Not Resolved]
  - Mobility decreased [Not Recovered/Not Resolved]
  - Stoma site extravasation [Recovering/Resolving]

NARRATIVE: CASE EVENT DATE: 201912
